FAERS Safety Report 8275210-6 (Version None)
Quarter: 2012Q2

REPORT INFORMATION
  Report Type: 
  Country: None (occurrence: None)
  Receive Date: 20120411
  Receipt Date: 20120409
  Transmission Date: 20120825
  Serious: No
  Sender: FDA-Public Use
  Company Number: US-BAYER-2012-034847

PATIENT

DRUGS (4)
  1. ALEVE (CAPLET) [Suspect]
     Indication: PYREXIA
     Route: 048
  2. IBUPROFEN [Suspect]
     Indication: PYREXIA
  3. ALEVE (CAPLET) [Suspect]
     Indication: HEADACHE
  4. IBUPROFEN [Suspect]
     Indication: HEADACHE

REACTIONS (1)
  - NO ADVERSE EVENT [None]
